FAERS Safety Report 6490089-0 (Version None)
Quarter: 2009Q4

REPORT INFORMATION
  Report Type: 
  Country: None (occurrence: None)
  Receive Date: 20091211
  Receipt Date: 20090330
  Transmission Date: 20100525
  Serious: No
  Sender: FDA-Public Use
  Company Number: A0767794A

PATIENT
  Sex: Female

DRUGS (1)
  1. FLONASE [Suspect]
     Indication: EAR PAIN
     Route: 045

REACTIONS (3)
  - COUGH [None]
  - ILL-DEFINED DISORDER [None]
  - NECK INJURY [None]
